FAERS Safety Report 16811917 (Version 3)
Quarter: 2019Q4

REPORT INFORMATION
  Report Type: Report from Study
  Country: None (occurrence: US)
  Receive Date: 20190916
  Receipt Date: 20191011
  Transmission Date: 20200122
  Serious: Yes (Death, Life-Threatening, Hospitalization, Other)
  Sender: FDA-Public Use
  Company Number: US-ABBVIE-19P-163-2893290-00

PATIENT
  Age: 26 Year
  Sex: Female
  Weight: 75.9 kg

DRUGS (3)
  1. DINACICLIB [Suspect]
     Active Substance: DINACICLIB
     Indication: ACUTE MYELOID LEUKAEMIA
     Route: 042
     Dates: start: 20190801, end: 20190906
  2. FLUCONAZOLE. [Concomitant]
     Active Substance: FLUCONAZOLE
     Indication: VULVOVAGINAL CANDIDIASIS
     Dates: start: 20190813, end: 20190813
  3. VENETOCLAX. [Suspect]
     Active Substance: VENETOCLAX
     Indication: ACUTE MYELOID LEUKAEMIA
     Route: 048
     Dates: start: 20190801, end: 20190830

REACTIONS (2)
  - Lactic acidosis [Fatal]
  - Bacteraemia [Recovered/Resolved]

NARRATIVE: CASE EVENT DATE: 20190815
